FAERS Safety Report 5390473-2 (Version None)
Quarter: 2007Q3

REPORT INFORMATION
  Report Type: 
  Country: None (occurrence: None)
  Receive Date: 20070718
  Receipt Date: 20060905
  Transmission Date: 20080115
  Serious: No
  Sender: FDA-Public Use
  Company Number: US-KINGPHARMUSA00001-K200601134

PATIENT

DRUGS (4)
  1. LEVOXYL [Suspect]
     Indication: HYPOTHYROIDISM
     Dosage: 5 MCG, QD
     Route: 048
     Dates: start: 19960101, end: 20060803
  2. COZAAR [Concomitant]
     Dosage: UNK, UNK
     Route: 048
  3. COSOPT [Concomitant]
     Dosage: UNK, UNK
     Route: 047
  4. LUMIGAN [Concomitant]
     Dosage: UNK, UNK
     Route: 047

REACTIONS (2)
  - ABNORMAL FAECES [None]
  - ASTHENIA [None]
